FAERS Safety Report 22037065 (Version 1)
Quarter: 2023Q1

REPORT INFORMATION
  Report Type: Report from Study
  Country: US (occurrence: US)
  Receive Date: 20230226
  Receipt Date: 20230226
  Transmission Date: 20230418
  Serious: Yes (Hospitalization, Other)
  Sender: FDA-Public Use
  Company Number: US-JNJFOC-20230235381

PATIENT

DRUGS (2)
  1. RISPERDAL [Suspect]
     Active Substance: RISPERIDONE
     Indication: Schizophrenia
     Route: 048
  2. INVEGA [Suspect]
     Active Substance: PALIPERIDONE
     Indication: Schizophrenia
     Route: 048

REACTIONS (8)
  - Schizophrenia [Unknown]
  - Hospitalisation [Unknown]
  - Drug intolerance [Unknown]
  - Metabolic disorder [Unknown]
  - Gastrointestinal disorder [Unknown]
  - Drug ineffective [Unknown]
  - Treatment noncompliance [Unknown]
  - Illness [Unknown]
